FAERS Safety Report 5821398-3 (Version None)
Quarter: 2008Q3

REPORT INFORMATION
  Report Type: 
  Country: None (occurrence: None)
  Receive Date: 20080721
  Receipt Date: 20080714
  Transmission Date: 20090109
  Serious: Yes (Hospitalization)
  Sender: FDA-Public Use
  Company Number: APP200800647

PATIENT
  Sex: Female
  Weight: 57.1532 kg

DRUGS (6)
  1. CARBOPLATIN [Suspect]
     Indication: METASTATIC NEOPLASM
     Dosage: 374 MG, AUC 4.5, INTRAVENOUS
     Route: 042
     Dates: start: 20080414, end: 20080414
  2. CARBOPLATIN [Suspect]
     Indication: METASTATIC NEOPLASM
     Dosage: 374 MG, AUC 4.5, INTRAVENOUS
     Route: 042
     Dates: start: 20080512, end: 20080512
  3. TAXOL [Suspect]
     Indication: METASTATIC NEOPLASM
     Dosage: 237 MG, 150 MG/M2, INTRAVENOUS
     Route: 042
     Dates: start: 20080414, end: 20080414
  4. TAXOL [Suspect]
     Indication: METASTATIC NEOPLASM
     Dosage: 237 MG, 150 MG/M2, INTRAVENOUS
     Route: 042
     Dates: start: 20080512, end: 20080512
  5. ETOPOSIDE [Suspect]
     Indication: METASTATIC NEOPLASM
     Dosage: 50 MG, 1 IN 1 D, ORAL
     Route: 048
     Dates: start: 20080414, end: 20080414
  6. ETOPOSIDE [Suspect]
     Indication: METASTATIC NEOPLASM
     Dosage: 50 MG, 1 IN 1 D, ORAL
     Route: 048
     Dates: start: 20080521, end: 20080521

REACTIONS (7)
  - ASTHENIA [None]
  - COUGH [None]
  - DUODENAL ULCER [None]
  - DYSPHAGIA [None]
  - DYSPNOEA [None]
  - OESOPHAGEAL CANDIDIASIS [None]
  - PANCYTOPENIA [None]
